FAERS Safety Report 15429731 (Version 2)
Quarter: 2018Q4

REPORT INFORMATION
  Report Type: Spontaneous
  Country: GR (occurrence: GR)
  Receive Date: 20180926
  Receipt Date: 20181112
  Transmission Date: 20190204
  Serious: Yes (Other)
  Sender: FDA-Public Use
  Company Number: GR-BAYER-2018-177603

PATIENT
  Age: 55 Year
  Sex: Male

DRUGS (2)
  1. BETAFERON [Suspect]
     Active Substance: INTERFERON BETA-1B
     Dosage: 0.75 ML, UNK
     Route: 058
     Dates: start: 2018, end: 201810
  2. BETAFERON [Suspect]
     Active Substance: INTERFERON BETA-1B
     Dosage: 0.8 ML, UNK
     Dates: start: 201808

REACTIONS (5)
  - Fatigue [Recovered/Resolved]
  - Arrhythmia [Recovered/Resolved]
  - Drug intolerance [None]
  - Palpitations [Recovered/Resolved]
  - Asthenia [Recovered/Resolved]

NARRATIVE: CASE EVENT DATE: 2018
